FAERS Safety Report 14126918 (Version 2)
Quarter: 2018Q1

REPORT INFORMATION
  Report Type: Report from Study
  Country: None (occurrence: US)
  Receive Date: 20171025
  Receipt Date: 20180215
  Transmission Date: 20180508
  Serious: Yes (Hospitalization)
  Sender: FDA-Public Use
  Company Number: US-ABBVIE-17K-163-2009547-00

PATIENT
  Sex: Male

DRUGS (2)
  1. TRAZODONE [Suspect]
     Active Substance: TRAZODONE HYDROCHLORIDE
     Indication: PRODUCT USED FOR UNKNOWN INDICATION
     Route: 065
  2. HUMIRA [Suspect]
     Active Substance: ADALIMUMAB
     Indication: PSORIASIS
     Route: 058
     Dates: start: 20170612

REACTIONS (9)
  - Vomiting [Unknown]
  - Abdominal pain [Recovering/Resolving]
  - Skin irritation [Not Recovered/Not Resolved]
  - Drug hypersensitivity [Unknown]
  - Nausea [Unknown]
  - Pain of skin [Recovered/Resolved]
  - Abdominal discomfort [Unknown]
  - Psoriasis [Not Recovered/Not Resolved]
  - Dermatitis psoriasiform [Unknown]

NARRATIVE: CASE EVENT DATE: 2017
